FAERS Safety Report 5079557-6 (Version None)
Quarter: 2006Q3

REPORT INFORMATION
  Report Type: 
  Country: None (occurrence: None)
  Receive Date: 20060811
  Receipt Date: 20060811
  Transmission Date: 20061208
  Serious: Yes (Hospitalization)
  Sender: FDA-Public Use
  Company Number: None

PATIENT
  Age: 93 Year
  Sex: Male

DRUGS (3)
  1. PHENYTOIN [Suspect]
     Indication: CONVULSION
     Route: 048
     Dates: start: 20051221, end: 20060601
  2. HYDROCHLOROTHIAZIDE [Concomitant]
  3. DILANTIN [Concomitant]

REACTIONS (3)
  - ANTICONVULSANT DRUG LEVEL ABOVE THERAPEUTIC [None]
  - FALL [None]
  - FEMUR FRACTURE [None]
